FAERS Safety Report 7439666-0 (Version None)
Quarter: 2011Q2

REPORT INFORMATION
  Report Type: 
  Country: None (occurrence: None)
  Receive Date: 20110427
  Receipt Date: 20110412
  Transmission Date: 20111010
  Serious: Yes (Other)
  Sender: FDA-Public Use
  Company Number: PHHY2009JP18411

PATIENT
  Sex: Male

DRUGS (4)
  1. AMN107 [Suspect]
     Indication: CHRONIC MYELOID LEUKAEMIA
     Dosage: 400 MG DAILY
     Route: 048
     Dates: start: 20090424, end: 20090623
  2. AMN107 [Suspect]
     Dosage: 400 MG DAILY
     Route: 048
     Dates: start: 20100201, end: 20100428
  3. AMN107 [Suspect]
     Dosage: 800  MG DAILY
     Route: 048
     Dates: start: 20090624, end: 20091111
  4. AMN107 [Suspect]
     Dosage: 800  MG DAILY
     Route: 048
     Dates: start: 20091221, end: 20100118

REACTIONS (4)
  - MYALGIA [None]
  - BLOOD CREATINE PHOSPHOKINASE INCREASED [None]
  - PYREXIA [None]
  - CONJUNCTIVITIS [None]
